FAERS Safety Report 4871504-2 (Version None)
Quarter: 2005Q4

REPORT INFORMATION
  Report Type: 
  Country: None (occurrence: None)
  Receive Date: 20051229
  Receipt Date: 20051212
  Transmission Date: 20060501
  Serious: Yes (Death)
  Sender: FDA-Public Use
  Company Number: US200512002145

PATIENT
  Sex: Female

DRUGS (2)
  1. FORTEO [Suspect]
     Dates: start: 20041201, end: 20051205
  2. FORTEO PEN (FORTEO PEN) PEN DISPOSABLE [Concomitant]

REACTIONS (3)
  - CARDIAC DISORDER [None]
  - CARDIAC FAILURE CONGESTIVE [None]
  - CONDITION AGGRAVATED [None]
